FAERS Safety Report 18462084 (Version 1)
Quarter: 2020Q4

REPORT INFORMATION
  Report Type: Spontaneous
  Country: US (occurrence: US)
  Receive Date: 20201103
  Receipt Date: 20201103
  Transmission Date: 20210114
  Serious: Yes (Hospitalization, Other)
  Sender: FDA-Public Use
  Company Number: None

PATIENT
  Age: 41 Year
  Sex: Female

DRUGS (1)
  1. AIMOVIG [Suspect]
     Active Substance: ERENUMAB-AOOE
     Indication: MIGRAINE
     Dosage: ?          QUANTITY:1 INJECTION;OTHER FREQUENCY:INJ 1 PEN SQ PO ;?
     Route: 058
     Dates: start: 20201001, end: 20201001

REACTIONS (2)
  - Respiratory arrest [None]
  - Seizure [None]

NARRATIVE: CASE EVENT DATE: 20201001
